FAERS Safety Report 5776612-X (Version None)
Quarter: 2008Q2

REPORT INFORMATION
  Report Type: 
  Country: None (occurrence: None)
  Receive Date: 20080618
  Receipt Date: 20080616
  Transmission Date: 20081010
  Serious: Yes (Hospitalization)
  Sender: FDA-Public Use
  Company Number: GB-BRISTOL-MYERS SQUIBB COMPANY-14229603

PATIENT
  Age: 43 Year
  Sex: Male
  Weight: 113 kg

DRUGS (3)
  1. CISPLATIN [Suspect]
     Indication: BLADDER CANCER
     Dosage: FIRST DOSE WAS ADMINISTERED ON 30-OCT-2003.
     Dates: start: 20040122, end: 20040122
  2. PACLITAXEL [Suspect]
     Indication: BLADDER CANCER
     Dosage: FIRST DOSE WAS ADMINISTERED ON 30-OCT-2003.
     Dates: start: 20040122, end: 20040122
  3. GEMCITABINE [Suspect]
     Indication: BLADDER CANCER
     Dosage: FIRST DOSE WAS ADMINISTERED ON 30-OCT-2003.
     Dates: start: 20040122, end: 20040122

REACTIONS (1)
  - EPISTAXIS [None]
